FAERS Safety Report 10482572 (Version 2)
Quarter: 2014Q4

REPORT INFORMATION
  Report Type: Spontaneous
  Country: JP (occurrence: JP)
  Receive Date: 20140929
  Receipt Date: 20141212
  Transmission Date: 20150528
  Serious: Yes (Other)
  Sender: FDA-Public Use
  Company Number: JP-BAUSCH-BL-2014-005043

PATIENT
  Age: 75 Year
  Sex: Male

DRUGS (1)
  1. VISUDYNE [Suspect]
     Active Substance: VERTEPORFIN
     Indication: CHOROIDAL NEOVASCULARISATION

REACTIONS (3)
  - Retinal depigmentation [Unknown]
  - Off label use [Unknown]
  - Retinal disorder [Unknown]
